FAERS Safety Report 23481693 (Version 1)
Quarter: 2024Q1

REPORT INFORMATION
  Report Type: Spontaneous
  Country: US (occurrence: US)
  Receive Date: 20240205
  Receipt Date: 20240205
  Transmission Date: 20240409
  Serious: No
  Sender: FDA-Public Use
  Company Number: US-DRL-USA-LIT/USA/24/0001367

PATIENT
  Age: 72 Year
  Sex: Male

DRUGS (2)
  1. MINOCYCLINE [Suspect]
     Active Substance: MINOCYCLINE HYDROCHLORIDE
     Indication: Rosacea
     Dosage: 100MG DAILY OVER 10 YEARS, FOLLOWED BY 3 DAYS PER WEEK AS MAINTENANCE THERAPY FOR THE NEXT 20 YEARS.
  2. MINOCYCLINE [Suspect]
     Active Substance: MINOCYCLINE HYDROCHLORIDE
     Dosage: 100MG DAILY OVER 10 YEARS, FOLLOWED BY 3 DAYS PER WEEK AS MAINTENANCE THERAPY FOR THE NEXT 20 YEARS.

REACTIONS (1)
  - Skin hyperpigmentation [Recovering/Resolving]
